FAERS Safety Report 8398968-4 (Version None)
Quarter: 2012Q1

REPORT INFORMATION
  Report Type: 
  Country: None (occurrence: None)
  Receive Date: 20120323
  Receipt Date: 20110216
  Transmission Date: 20120608
  Serious: Yes (Other)
  Sender: FDA-Public Use
  Company Number: 163-21880-11010540

PATIENT
  Age: 87 Year
  Sex: Female

DRUGS (9)
  1. TAMOXIFEN CITRATE [Concomitant]
  2. COMPAZINE [Concomitant]
  3. PRILOSEC [Concomitant]
  4. MULTIVITAMIN [Concomitant]
  5. CALCIUM CARBONATE [Concomitant]
  6. LOMOTRIL (LOMOTRIL) [Concomitant]
  7. LOVASTATIN [Concomitant]
  8. REVLIMID [Suspect]
     Indication: MYELODYSPLASTIC SYNDROME
     Dosage: 10 MG, 1 IN 1 D, PO
     Route: 048
     Dates: start: 20090820, end: 20101228
  9. LISINOPRIL [Concomitant]

REACTIONS (4)
  - HAEMOGLOBIN DECREASED [None]
  - DRUG INEFFECTIVE [None]
  - PLATELET COUNT DECREASED [None]
  - NEUTROPHIL COUNT DECREASED [None]
